FAERS Safety Report 14265649 (Version 20)
Quarter: 2020Q4

REPORT INFORMATION
  Report Type: Report from Study
  Country: DO (occurrence: DO)
  Receive Date: 20171208
  Receipt Date: 20201113
  Transmission Date: 20210113
  Serious: Yes (Life-Threatening, Other)
  Sender: FDA-Public Use
  Company Number: PHHY2017DO146554

PATIENT
  Age: 28 Year
  Sex: Female
  Weight: 66.21 kg

DRUGS (18)
  1. GILENYA [Suspect]
     Active Substance: FINGOLIMOD HYDROCHLORIDE
     Indication: RELAPSING-REMITTING MULTIPLE SCLEROSIS
     Dosage: 0.5 MG, QD
     Route: 048
     Dates: start: 20170513
  2. GILENYA [Suspect]
     Active Substance: FINGOLIMOD HYDROCHLORIDE
     Dosage: 0.5 MG, QD
     Route: 048
     Dates: start: 20170613
  3. GILENYA [Suspect]
     Active Substance: FINGOLIMOD HYDROCHLORIDE
     Dosage: UNK
     Route: 065
  4. TEGRETOL [Suspect]
     Active Substance: CARBAMAZEPINE
     Dosage: 400 MG
     Route: 065
  5. CARBAMAZEPINE. [Suspect]
     Active Substance: CARBAMAZEPINE
     Indication: HEADACHE
     Dosage: 200 MG, TID
     Route: 048
     Dates: start: 201611
  6. CARBAMAZEPINE. [Suspect]
     Active Substance: CARBAMAZEPINE
     Dosage: 450 MG
     Route: 065
  7. LANITOP [Concomitant]
     Active Substance: METILDIGOXIN
     Indication: PRODUCT USED FOR UNKNOWN INDICATION
     Dosage: UNK
     Route: 065
  8. GILENYA [Suspect]
     Active Substance: FINGOLIMOD HYDROCHLORIDE
     Dosage: 0.5 MG, QD
     Route: 065
     Dates: start: 20170614
  9. GILENYA [Suspect]
     Active Substance: FINGOLIMOD HYDROCHLORIDE
     Dosage: 0.5 MG
     Route: 065
  10. GILENYA [Suspect]
     Active Substance: FINGOLIMOD HYDROCHLORIDE
     Dosage: 0.5 MG, QD
     Route: 065
     Dates: start: 201706
  11. CARBAMAZEPINE. [Suspect]
     Active Substance: CARBAMAZEPINE
     Dosage: 800 MG
     Route: 048
  12. GILENYA [Suspect]
     Active Substance: FINGOLIMOD HYDROCHLORIDE
     Dosage: 0.5 MG, QD
     Route: 065
  13. TEGRETOL [Suspect]
     Active Substance: CARBAMAZEPINE
     Indication: PRODUCT USED FOR UNKNOWN INDICATION
     Dosage: 200 MG, BID
     Route: 065
     Dates: start: 201710
  14. LEVETIRACETAM. [Concomitant]
     Active Substance: LEVETIRACETAM
     Indication: PRODUCT USED FOR UNKNOWN INDICATION
     Dosage: 0.5 DF, Q8H
     Route: 065
  15. GILENYA [Suspect]
     Active Substance: FINGOLIMOD HYDROCHLORIDE
     Dosage: 0.5 MG, QD
     Route: 065
  16. GILENYA [Suspect]
     Active Substance: FINGOLIMOD HYDROCHLORIDE
     Dosage: 0.5 MG, QD
     Route: 065
  17. CARBAMAZEPINE. [Suspect]
     Active Substance: CARBAMAZEPINE
     Dosage: 400 MG, Q12H
     Route: 065
     Dates: start: 201603
  18. TERIL [Concomitant]
     Indication: PRODUCT USED FOR UNKNOWN INDICATION
     Dosage: 400 MG, Q12H
     Route: 065
     Dates: start: 201603

REACTIONS (54)
  - Adnexa uteri pain [Unknown]
  - Endometriosis [Unknown]
  - Loss of consciousness [Unknown]
  - Mouth injury [Unknown]
  - Discomfort [Unknown]
  - Anal incontinence [Unknown]
  - Pyrexia [Unknown]
  - Fatigue [Unknown]
  - Influenza [Unknown]
  - Dizziness [Not Recovered/Not Resolved]
  - Overdose [Unknown]
  - Urinary incontinence [Unknown]
  - Anaemia [Unknown]
  - Feeling abnormal [Unknown]
  - Back pain [Unknown]
  - Haemorrhagic ovarian cyst [Unknown]
  - Dysmenorrhoea [Unknown]
  - Lethargy [Unknown]
  - Product packaging issue [Unknown]
  - Drug ineffective for unapproved indication [Unknown]
  - Seizure [Recovering/Resolving]
  - Hypoaesthesia [Unknown]
  - Discouragement [Unknown]
  - Nervousness [Unknown]
  - Asthenia [Unknown]
  - Malaise [Unknown]
  - Glaucoma [Not Recovered/Not Resolved]
  - Mobility decreased [Unknown]
  - Menstrual disorder [Unknown]
  - Pain [Unknown]
  - Metrorrhagia [Unknown]
  - Respiratory disorder [Unknown]
  - Restlessness [Recovering/Resolving]
  - Nausea [Unknown]
  - Multiple sclerosis relapse [Unknown]
  - Dysstasia [Unknown]
  - Vomiting [Unknown]
  - Ocular hyperaemia [Unknown]
  - Incoherent [Unknown]
  - Swelling face [Unknown]
  - Migraine [Not Recovered/Not Resolved]
  - Patient elopement [Recovering/Resolving]
  - Disorientation [Unknown]
  - Stress [Unknown]
  - Somnolence [Not Recovered/Not Resolved]
  - Tremor [Unknown]
  - Dyspnoea [Unknown]
  - Headache [Not Recovered/Not Resolved]
  - Product use in unapproved indication [Unknown]
  - Menorrhagia [Not Recovered/Not Resolved]
  - Memory impairment [Not Recovered/Not Resolved]
  - Visual impairment [Not Recovered/Not Resolved]
  - Pain in extremity [Unknown]
  - Influenza [Recovered/Resolved]

NARRATIVE: CASE EVENT DATE: 201711
